FAERS Safety Report 16022772 (Version 1)
Quarter: 2019Q2

REPORT INFORMATION
  Report Type: Spontaneous
  Country: US (occurrence: US)
  Receive Date: 20190301
  Receipt Date: 20190301
  Transmission Date: 20190711
  Serious: Yes (Hospitalization, Disabling, Other)
  Sender: FDA-Public Use
  Company Number: None

PATIENT
  Age: 67 Year
  Sex: Male
  Weight: 110.25 kg

DRUGS (1)
  1. OCREVUS [Suspect]
     Active Substance: OCRELIZUMAB
     Indication: MULTIPLE SCLEROSIS RELAPSE
     Dosage: ?          QUANTITY:1 INJECTION(S);OTHER FREQUENCY:EVERY 6 MONTHS;OTHER ROUTE:INFUSION?
     Dates: start: 20180306, end: 20180917

REACTIONS (6)
  - Stress fracture [None]
  - Drug ineffective [None]
  - Spinal fracture [None]
  - Multiple sclerosis relapse [None]
  - Contusion [None]
  - Wheelchair user [None]

NARRATIVE: CASE EVENT DATE: 20181228
